FAERS Safety Report 15901241 (Version 10)
Quarter: 2020Q2

REPORT INFORMATION
  Report Type: Spontaneous
  Country: US (occurrence: US)
  Receive Date: 20190201
  Receipt Date: 20200422
  Transmission Date: 20200713
  Serious: Yes (Hospitalization, Other)
  Sender: FDA-Public Use
  Company Number: US-LEXICON PHARMACEUTICALS, INC-19-1606-00117

PATIENT
  Age: 84 Year
  Sex: Male

DRUGS (5)
  1. XERMELO [Suspect]
     Active Substance: TELOTRISTAT ETHYL
     Route: 048
  2. XERMELO [Suspect]
     Active Substance: TELOTRISTAT ETHYL
  3. SANDOSTATIN [Concomitant]
     Active Substance: OCTREOTIDE ACETATE
  4. XERMELO [Suspect]
     Active Substance: TELOTRISTAT ETHYL
     Indication: CARCINOID TUMOUR
     Dosage: ALTERNATES DOSES
     Route: 048
     Dates: start: 20180710
  5. XERMELO [Suspect]
     Active Substance: TELOTRISTAT ETHYL
     Dosage: ALTERNATES DOSES
     Route: 048

REACTIONS (6)
  - Bladder neoplasm surgery [Unknown]
  - Urinary tract infection [Recovered/Resolved]
  - Dyspnoea exertional [Unknown]
  - Ureteral stent insertion [Unknown]
  - Constipation [Unknown]
  - Surgery [Unknown]
